FAERS Safety Report 7332385-0 (Version None)
Quarter: 2011Q1

REPORT INFORMATION
  Report Type: 
  Country: None (occurrence: None)
  Receive Date: 20110304
  Receipt Date: 20110222
  Transmission Date: 20110831
  Serious: Yes (Other)
  Sender: FDA-Public Use
  Company Number: B0702180A

PATIENT

DRUGS (2)
  1. HERCEPTIN [Suspect]
  2. TYVERB [Suspect]

REACTIONS (2)
  - GASTROINTESTINAL DISORDER [None]
  - HEPATOTOXICITY [None]
